FAERS Safety Report 15763352 (Version 1)
Quarter: 2018Q4

REPORT INFORMATION
  Report Type: Spontaneous
  Country: AU (occurrence: AU)
  Receive Date: 20181227
  Receipt Date: 20181227
  Transmission Date: 20190205
  Serious: Yes (Other)
  Sender: FDA-Public Use
  Company Number: AU-ROCHE-2235787

PATIENT
  Age: 7 Year
  Sex: Male

DRUGS (1)
  1. AVASTIN [Suspect]
     Active Substance: BEVACIZUMAB
     Indication: EXUDATIVE RETINOPATHY
     Dosage: 1.25MG/0.05ML
     Route: 050

REACTIONS (1)
  - Macular fibrosis [Recovering/Resolving]
